FAERS Safety Report 18658199 (Version 1)
Quarter: 2020Q4

REPORT INFORMATION
  Report Type: Spontaneous
  Country: US (occurrence: US)
  Receive Date: 20201223
  Receipt Date: 20201223
  Transmission Date: 20210114
  Serious: Yes (Other)
  Sender: FDA-Public Use
  Company Number: US-COOPERSURGICAL, INC.-US-2020CPS002017

PATIENT
  Age: 31 Year
  Sex: Female
  Weight: 46.71 kg

DRUGS (2)
  1. TEMODAR [Concomitant]
     Active Substance: TEMOZOLOMIDE
     Indication: PRODUCT USED FOR UNKNOWN INDICATION
     Dosage: UNK
     Route: 065
  2. PARAGARD T 380A [Suspect]
     Active Substance: COPPER
     Indication: CONTRACEPTION
     Dosage: UNK
     Route: 015
     Dates: start: 20191115, end: 20200812

REACTIONS (3)
  - Embedded device [Recovered/Resolved]
  - Device dislocation [Recovered/Resolved]
  - Coital bleeding [Unknown]

NARRATIVE: CASE EVENT DATE: 202007
